FAERS Safety Report 9168193 (Version 1)
Quarter: 2013Q1

REPORT INFORMATION
  Report Type: Spontaneous
  Country: US (occurrence: None)
  Receive Date: 20130313
  Receipt Date: 20130313
  Transmission Date: 20140127
  Serious: Yes (Death)
  Sender: FDA-Public Use
  Company Number: UTC-030133

PATIENT
  Age: 58 Year
  Sex: Female
  Weight: 77.72 kg

DRUGS (1)
  1. TYVASO [Suspect]
     Indication: COR PULMONALE CHRONIC
     Dosage: 18-54 MCGS (4 IN 1 D), INHALATION
     Dates: start: 20121011

REACTIONS (1)
  - Death [None]
